FAERS Safety Report 4421091-8 (Version None)
Quarter: 2004Q3

REPORT INFORMATION
  Report Type: 
  Country: None (occurrence: None)
  Receive Date: 20040803
  Receipt Date: 20040722
  Transmission Date: 20050211
  Serious: Yes (Other)
  Sender: FDA-Public Use
  Company Number: US-JNJFOC-20040706726

PATIENT
  Sex: 0

DRUGS (1)
  1. RETEVASE [Suspect]
     Dates: start: 20040601

REACTIONS (1)
  - MYOCARDIAL INFARCTION [None]
